FAERS Safety Report 5741409-3 (Version None)
Quarter: 2008Q2

REPORT INFORMATION
  Report Type: 
  Country: None (occurrence: None)
  Receive Date: 20080514
  Receipt Date: 20080507
  Transmission Date: 20081010
  Serious: Yes (Other)
  Sender: FDA-Public Use
  Company Number: 2008SP008677

PATIENT
  Age: 51 Year
  Sex: Male

DRUGS (3)
  1. VIRAFERON [Suspect]
     Indication: HEPATITIS C
     Dates: start: 20080319
  2. REBETOL [Suspect]
     Indication: HEPATITIS C
     Dates: start: 20080319
  3. ATENOLOL [Concomitant]

REACTIONS (2)
  - ATRIOVENTRICULAR BLOCK COMPLETE [None]
  - FEELING ABNORMAL [None]
